FAERS Safety Report 6736494-6 (Version None)
Quarter: 2010Q2

REPORT INFORMATION
  Report Type: 
  Country: None (occurrence: None)
  Receive Date: 20100521
  Receipt Date: 20100512
  Transmission Date: 20101027
  Serious: Yes (Hospitalization)
  Sender: FDA-Public Use
  Company Number: US-SANOFI-AVENTIS-2010SA028139

PATIENT
  Age: 75 Year
  Sex: Male

DRUGS (3)
  1. LANTUS [Suspect]
     Dosage: DOSE:58 UNIT(S)
     Route: 058
     Dates: start: 20070101, end: 20100501
  2. LANTUS [Suspect]
     Dosage: DOSE:44 UNIT(S)
     Route: 058
     Dates: start: 20100501
  3. SOLOSTAR [Suspect]
     Dates: start: 20070101

REACTIONS (1)
  - RENAL FAILURE [None]
